FAERS Safety Report 7202114-X (Version None)
Quarter: 2010Q4

REPORT INFORMATION
  Report Type: 
  Country: None (occurrence: None)
  Receive Date: 20101229
  Receipt Date: 20101221
  Transmission Date: 20110411
  Serious: Yes (Hospitalization)
  Sender: FDA-Public Use
  Company Number: SE-EISAI INC.-E2090-01447-SPO-SE

PATIENT
  Age: 15 Year
  Sex: Female

DRUGS (4)
  1. ZONEGRAN [Suspect]
     Indication: EPILEPSY
     Route: 048
     Dates: start: 20100501, end: 20100901
  2. CIRCADIN PROLONGED RELEASE [Concomitant]
     Route: 048
     Dates: start: 20101008, end: 20101013
  3. PREDNISOLONE [Concomitant]
  4. FENEMAEL [Concomitant]

REACTIONS (1)
  - THROMBOCYTOPENIA [None]
